FAERS Safety Report 6278244-6 (Version None)
Quarter: 2009Q3

REPORT INFORMATION
  Report Type: 
  Country: None (occurrence: None)
  Receive Date: 20090722
  Receipt Date: 20090713
  Transmission Date: 20100115
  Serious: Yes (Life-Threatening, Hospitalization)
  Sender: FDA-Public Use
  Company Number: FR-WYE-H10233209

PATIENT
  Age: 79 Year
  Sex: Male

DRUGS (12)
  1. CORDARONE [Suspect]
     Indication: DRUG USE FOR UNKNOWN INDICATION
     Route: 048
  2. ALDACTONE [Concomitant]
  3. EXTENCILLINE [Concomitant]
  4. GLUCOPHAGE [Concomitant]
  5. TARDYFERON [Concomitant]
  6. PLAVIX [Concomitant]
  7. COVERSYL [Concomitant]
  8. DIFFU K [Concomitant]
  9. FONZYLANE [Concomitant]
  10. LEVOTHYROX [Concomitant]
  11. HEMIGOXINE NATIVELLE [Interacting]
     Indication: DRUG USE FOR UNKNOWN INDICATION
     Dosage: 0.125MG TWICE DAILY; FROM AN UNKNOWN DATE TO 2009
     Route: 048
  12. LASIX [Concomitant]

REACTIONS (5)
  - CARDIAC ARREST [None]
  - DRUG INTERACTION [None]
  - HYPOTENSION [None]
  - SINUS BRADYCARDIA [None]
  - THERAPEUTIC AGENT TOXICITY [None]
